FAERS Safety Report 9570751 (Version 3)
Quarter: 2014Q2

REPORT INFORMATION
  Report Type: Spontaneous
  Country: SE (occurrence: SE)
  Receive Date: 20131001
  Receipt Date: 20140404
  Transmission Date: 20141212
  Serious: Yes (Hospitalization, Other)
  Sender: FDA-Public Use
  Company Number: SE-ROCHE-1282751

PATIENT
  Sex: Female

DRUGS (5)
  1. XOLAIR [Suspect]
     Indication: PRODUCT USED FOR UNKNOWN INDICATION
     Route: 058
     Dates: start: 20071012
  2. NOVOPULMON [Concomitant]
     Route: 065
  3. VENTILASTIN [Concomitant]
     Route: 065
     Dates: start: 20081012
  4. SINGULAIR [Concomitant]
     Route: 065
     Dates: start: 20081012
  5. LOMUDAL [Concomitant]
     Route: 065
     Dates: start: 20071111

REACTIONS (2)
  - Asthma [Recovered/Resolved]
  - Anaphylactic reaction [Recovered/Resolved]
